FAERS Safety Report 9712396 (Version 1)
Quarter: 2013Q4

REPORT INFORMATION
  Report Type: Spontaneous
  Country: US (occurrence: US)
  Receive Date: 20131126
  Receipt Date: 20131126
  Transmission Date: 20140711
  Serious: Yes (Other)
  Sender: FDA-Public Use
  Company Number: US-BRISTOL-MYERS SQUIBB COMPANY-18868943

PATIENT
  Sex: Female

DRUGS (1)
  1. BYDUREON [Suspect]
     Route: 058
     Dates: start: 20130426

REACTIONS (5)
  - Swollen tongue [Not Recovered/Not Resolved]
  - Throat irritation [Not Recovered/Not Resolved]
  - Oropharyngeal pain [Not Recovered/Not Resolved]
  - Dysphagia [Not Recovered/Not Resolved]
  - Decreased appetite [Not Recovered/Not Resolved]
